FAERS Safety Report 9719701 (Version 2)
Quarter: 2013Q4

REPORT INFORMATION
  Report Type: Spontaneous
  Country: US (occurrence: US)
  Receive Date: 20131128
  Receipt Date: 20131217
  Transmission Date: 20140711
  Serious: Yes (Death)
  Sender: FDA-Public Use
  Company Number: US-AMGEN-USASP2013083064

PATIENT
  Age: 98 Year
  Sex: Female
  Weight: 49.43 kg

DRUGS (6)
  1. PROLIA [Suspect]
     Indication: OSTEOPOROSIS POSTMENOPAUSAL
     Dosage: 60 MG, Q6MO
     Route: 058
     Dates: start: 20110418
  2. ADVAIR [Concomitant]
     Route: 065
  3. ALIGN [Concomitant]
     Route: 065
  4. AMBIEN CR [Concomitant]
     Route: 065
  5. AMIODARONE [Concomitant]
     Route: 065
  6. POTASSIUM CHLORIDE [Concomitant]
     Route: 065

REACTIONS (1)
  - Death [Fatal]
